FAERS Safety Report 13926238 (Version 5)
Quarter: 2019Q3

REPORT INFORMATION
  Report Type: Spontaneous
  Country: US (occurrence: US)
  Receive Date: 20170831
  Receipt Date: 20190712
  Transmission Date: 20191004
  Serious: Yes (Hospitalization, Other)
  Sender: FDA-Public Use
  Company Number: US-DSJP-DSU-2017-133465

PATIENT

DRUGS (2)
  1. BENICAR [Suspect]
     Active Substance: OLMESARTAN MEDOXOMIL
     Indication: PRODUCT USED FOR UNKNOWN INDICATION
     Dosage: 40 MG, QD
     Route: 048
     Dates: start: 20110307, end: 20160107
  2. BENICAR HCT [Suspect]
     Active Substance: HYDROCHLOROTHIAZIDE\OLMESARTAN MEDOXOMIL
     Indication: PRODUCT USED FOR UNKNOWN INDICATION
     Dosage: 40-25 MG, QD
     Route: 048
     Dates: end: 20160107

REACTIONS (12)
  - Diverticulum oesophageal [Unknown]
  - Erosive duodenitis [Unknown]
  - Diverticulum intestinal [Unknown]
  - Gastritis erosive [Unknown]
  - Irritable bowel syndrome [Recovering/Resolving]
  - Acute kidney injury [Recovered/Resolved]
  - Gastroenteritis [Unknown]
  - Hiatus hernia [Not Recovered/Not Resolved]
  - Steroid therapy [Recovered/Resolved]
  - Sprue-like enteropathy [Recovering/Resolving]
  - Haemorrhoids [Unknown]
  - Gastrooesophageal reflux disease [Unknown]

NARRATIVE: CASE EVENT DATE: 20140509
